FAERS Safety Report 9492756 (Version 13)
Quarter: 2014Q4

REPORT INFORMATION
  Report Type: Spontaneous
  Country: US (occurrence: US)
  Receive Date: 20130830
  Receipt Date: 20141105
  Transmission Date: 20150529
  Serious: Yes (Hospitalization, Other)
  Sender: FDA-Public Use
  Company Number: US-GLAXOSMITHKLINE-A1039732A

PATIENT
  Age: 14 Year
  Sex: Male
  Weight: 33 kg

DRUGS (9)
  1. FLOLAN [Suspect]
     Active Substance: EPOPROSTENOL SODIUM
     Dates: start: 20080811, end: 20140807
  2. FLOLAN [Suspect]
     Active Substance: EPOPROSTENOL SODIUM
     Dates: start: 20080811, end: 20140807
  3. TRACLEER [Concomitant]
     Active Substance: BOSENTAN\BOSENTAN MONOHYDRATE
  4. MILRINONE [Concomitant]
     Active Substance: MILRINONE
  5. FLOLAN [Suspect]
     Active Substance: EPOPROSTENOL SODIUM
     Indication: PULMONARY ARTERIAL HYPERTENSION
     Dosage: 62 NG/KG/MIN
     Route: 042
     Dates: start: 20080811, end: 20140807
  6. REVATIO [Concomitant]
     Active Substance: SILDENAFIL CITRATE
  7. FLOLAN [Suspect]
     Active Substance: EPOPROSTENOL SODIUM
     Dates: start: 20080811, end: 20140807
  8. BETA BLOCKER [Concomitant]
     Active Substance: UNSPECIFIED INGREDIENT
  9. LASIX [Concomitant]
     Active Substance: FUROSEMIDE

REACTIONS (14)
  - Drug ineffective [Unknown]
  - Fatigue [Unknown]
  - Palpitations [Recovering/Resolving]
  - Catheter site rash [Unknown]
  - Cardiac failure [Unknown]
  - Disease progression [Unknown]
  - Catheter site inflammation [Recovering/Resolving]
  - Dyspnoea [Recovering/Resolving]
  - General physical health deterioration [Unknown]
  - Hospitalisation [Recovering/Resolving]
  - Chest pain [Unknown]
  - Pulmonary hypertension [Recovering/Resolving]
  - Heart and lung transplant [Recovered/Resolved]
  - Dyspnoea exertional [Unknown]

NARRATIVE: CASE EVENT DATE: 20140507
